FAERS Safety Report 24312787 (Version 1)
Quarter: 2024Q3

REPORT INFORMATION
  Report Type: Spontaneous
  Country: US (occurrence: None)
  Receive Date: 20240911
  Receipt Date: 20240911
  Transmission Date: 20241017
  Serious: Yes (Disabling)
  Sender: Public
  Company Number: None

PATIENT
  Age: 71 Year
  Sex: Male
  Weight: 135 kg

DRUGS (24)
  1. CARVEDILOL [Suspect]
     Active Substance: CARVEDILOL
     Indication: Hypertension
     Dosage: OTHER QUANTITY : 1 TABLET(S);?FREQUENCY : TWICE A DAY;?
     Route: 048
     Dates: start: 20211017, end: 20211129
  2. CARVEDILOL [Suspect]
     Active Substance: CARVEDILOL
     Indication: Atrial fibrillation
  3. CARVEDILOL [Suspect]
     Active Substance: CARVEDILOL
     Indication: Atrial fibrillation
  4. CARVEDILOL [Suspect]
     Active Substance: CARVEDILOL
     Indication: Atrial fibrillation
  5. OXYGEN [Concomitant]
  6. lymphatic pumps [Concomitant]
  7. DIGOXIN [Concomitant]
  8. METFORMIN [Concomitant]
  9. INSULIN GLARGINE-YFGN [Concomitant]
     Active Substance: INSULIN GLARGINE-YFGN
  10. METOPROLOL [Concomitant]
  11. cloniding [Concomitant]
  12. HYDRALAZINE [Concomitant]
  13. INSULIN ASPART [Concomitant]
  14. human sliding scale [Concomitant]
  15. VALSARTAN [Concomitant]
  16. indomethacin [Concomitant]
  17. aspirin [Concomitant]
  18. CINNAMON [Concomitant]
     Active Substance: CINNAMON
  19. MAGNESIUM [Concomitant]
     Active Substance: MAGNESIUM
  20. VITAMIN B [Concomitant]
     Active Substance: VITAMIN B
  21. saw palmetto [Concomitant]
  22. multivitamin [Concomitant]
  23. FOLIC ACID [Concomitant]
     Active Substance: FOLIC ACID
  24. ZINC [Concomitant]
     Active Substance: ZINC

REACTIONS (2)
  - Loss of libido [None]
  - Therapy interrupted [None]

NARRATIVE: CASE EVENT DATE: 20211017
